FAERS Safety Report 18948685 (Version 1)
Quarter: 2021Q1

REPORT INFORMATION
  Report Type: Report from Study
  Country: None (occurrence: US)
  Receive Date: 20210226
  Receipt Date: 20210226
  Transmission Date: 20210420
  Serious: Yes (Hospitalization)
  Sender: FDA-Public Use
  Company Number: US-ABBVIE-20P-163-3386727-00

PATIENT
  Sex: Male

DRUGS (10)
  1. IMBRUVICA [Suspect]
     Active Substance: IBRUTINIB
     Indication: CHRONIC LYMPHOCYTIC LEUKAEMIA
     Route: 048
     Dates: start: 20171218
  2. DOXYCYCLINE. [Concomitant]
     Active Substance: DOXYCYCLINE
     Indication: PRODUCT USED FOR UNKNOWN INDICATION
  3. IMBRUVICA [Suspect]
     Active Substance: IBRUTINIB
     Route: 048
  4. BACLOFEN. [Concomitant]
     Active Substance: BACLOFEN
     Indication: MUSCLE SPASMS
  5. IMBRUVICA [Suspect]
     Active Substance: IBRUTINIB
     Indication: CHRONIC LYMPHOCYTIC LEUKAEMIA
     Route: 048
     Dates: end: 20180514
  6. IMBRUVICA [Suspect]
     Active Substance: IBRUTINIB
     Route: 048
  7. IMBRUVICA [Suspect]
     Active Substance: IBRUTINIB
     Indication: CHRONIC LYMPHOCYTIC LEUKAEMIA
     Route: 048
     Dates: end: 20180513
  8. IMBRUVICA [Suspect]
     Active Substance: IBRUTINIB
     Indication: CHRONIC LYMPHOCYTIC LEUKAEMIA
     Route: 048
     Dates: start: 20180515
  9. MARINOL [Concomitant]
     Active Substance: DRONABINOL
     Indication: PRODUCT USED FOR UNKNOWN INDICATION
  10. ONDANSETRON [Concomitant]
     Active Substance: ONDANSETRON
     Indication: PRODUCT USED FOR UNKNOWN INDICATION

REACTIONS (15)
  - Muscle spasms [Recovered/Resolved]
  - Weight increased [Unknown]
  - Localised infection [Recovering/Resolving]
  - Nausea [Recovered/Resolved]
  - Adverse reaction [Recovered/Resolved]
  - Platelet count abnormal [Unknown]
  - Stomatitis [Recovering/Resolving]
  - Illness [Recovered/Resolved]
  - Labelled drug-food interaction issue [Unknown]
  - Drug interaction [Unknown]
  - Onychoclasis [Not Recovered/Not Resolved]
  - Fatigue [Not Recovered/Not Resolved]
  - Blood count abnormal [Unknown]
  - Noninfective gingivitis [Recovering/Resolving]
  - Food interaction [Unknown]
